FAERS Safety Report 7211375-2 (Version None)
Quarter: 2010Q4

REPORT INFORMATION
  Report Type: 
  Country: None (occurrence: None)
  Receive Date: 20101223
  Receipt Date: 20101215
  Transmission Date: 20110411
  Serious: Yes (Disabling, Other)
  Sender: FDA-Public Use
  Company Number: 2010MA005374

PATIENT
  Age: 62 Year
  Sex: Male

DRUGS (4)
  1. AMLODIPINE BESYLATE [Suspect]
     Indication: HYPERTENSION
     Dosage: 5 MG; QD; PO
     Route: 048
     Dates: start: 20101012, end: 20101208
  2. CO-TENIDONE [Concomitant]
  3. RAMIPRIL [Concomitant]
  4. ACETYLSALICYLIC ACID SRT [Concomitant]

REACTIONS (1)
  - VASCULITIS [None]
